FAERS Safety Report 17031762 (Version 1)
Quarter: 2019Q4

REPORT INFORMATION
  Report Type: Spontaneous
  Country: US (occurrence: US)
  Receive Date: 20191012
  Receipt Date: 20191012
  Transmission Date: 20200122
  Serious: Yes (Death, Hospitalization)
  Sender: FDA-Public Use
  Company Number: None

PATIENT
  Age: 63 Year
  Sex: Female
  Weight: 68.2 kg

DRUGS (2)
  1. VELCADE [Suspect]
     Active Substance: BORTEZOMIB
     Dates: end: 20190917
  2. LENALIDOMIDE (CC-5013) [Suspect]
     Active Substance: LENALIDOMIDE
     Dates: end: 20190924

REACTIONS (5)
  - Metabolic acidosis [None]
  - Plasma cell myeloma [None]
  - Hypoglycaemia [None]
  - Anaemia [None]
  - Respiratory failure [None]

NARRATIVE: CASE EVENT DATE: 20191008
